FAERS Safety Report 5099166-2 (Version None)
Quarter: 2006Q3

REPORT INFORMATION
  Report Type: 
  Country: None (occurrence: None)
  Receive Date: 20060728
  Receipt Date: 20060329
  Transmission Date: 20061208
  Serious: No
  Sender: FDA-Public Use
  Company Number: COT_0616_2006

PATIENT
  Age: 7 Year
  Sex: Female
  Weight: 23.1334 kg

DRUGS (14)
  1. VENTAVIS [Suspect]
     Indication: PULMONARY HYPERTENSION
     Dosage: 2.5 MCG 6TO9X/DAY IH
     Dates: start: 20050525
  2. VENTAVIS [Suspect]
     Indication: PULMONARY HYPERTENSION
     Dosage: 2.5 MCG 5-7X/DAY IH
  3. WARFARIN SODIUM [Concomitant]
  4. AMOXICILLIN TRIHYDRATE [Concomitant]
  5. DIGOXIN [Concomitant]
  6. FUROSEMIDE [Concomitant]
  7. TRACLEER [Concomitant]
  8. RANITIDINE [Concomitant]
  9. ASPIRIN [Concomitant]
  10. BECLOMETHASONE DIPROPIONATE [Concomitant]
  11. ALBUTEROL [Concomitant]
  12. XOPENEX [Concomitant]
  13. OXYGEN [Concomitant]
  14. IBUPROFEN [Concomitant]

REACTIONS (4)
  - EYE PAIN [None]
  - MIGRAINE [None]
  - PHARYNGOLARYNGEAL PAIN [None]
  - VISION BLURRED [None]
